FAERS Safety Report 21532267 (Version 1)
Quarter: 2022Q4

REPORT INFORMATION
  Report Type: Other
  Country: KZ (occurrence: KZ)
  Receive Date: 20221101
  Receipt Date: 20221101
  Transmission Date: 20230113
  Serious: Yes (Disabling)
  Sender: FDA-Public Use
  Company Number: KZ-MACLEODS PHARMA EU LTD-MAC2022038037

PATIENT

DRUGS (4)
  1. PYRAZINAMIDE [Suspect]
     Active Substance: PYRAZINAMIDE
     Indication: Tuberculosis
     Dosage: UNK
     Route: 065
  2. Levozin 250 [Concomitant]
     Indication: Product used for unknown indication
     Dosage: UNK (NOBEL ALMATY PHARMACEUTICAL FACTORY)
     Route: 065
  3. Kombutol [Concomitant]
     Indication: Product used for unknown indication
     Dosage: UNK (CONCEPT PHARMACEUTICALS LIMITED)
     Route: 065
  4. RIFAMPIN [Concomitant]
     Active Substance: RIFAMPIN
     Indication: Product used for unknown indication
     Dosage: UNK (PAVLODAR PHARMACEUTICAL PLANT)
     Route: 065

REACTIONS (3)
  - Transaminases increased [Not Recovered/Not Resolved]
  - Nausea [Not Recovered/Not Resolved]
  - Vomiting [Not Recovered/Not Resolved]
